FAERS Safety Report 10255640 (Version 1)
Quarter: 2014Q2

REPORT INFORMATION
  Report Type: Spontaneous
  Country: US (occurrence: None)
  Receive Date: 20140522
  Receipt Date: 20140522
  Transmission Date: 20141212
  Serious: No
  Sender: FDA-Public Use
  Company Number: 1000054085

PATIENT
  Age: 63 Year
  Sex: Male

DRUGS (5)
  1. TUDORZA PRESSAIR (ACLIDINIUM BROMIDE) (400 MICROGRAM, POWDER) [Suspect]
     Indication: CHRONIC OBSTRUCTIVE PULMONARY DISEASE
     Dosage: 400 MCG (400 MCG, 1 IN 1 D, RESPIRATORY (INHALATION)
     Route: 055
     Dates: start: 201312
  2. ADVAIR DISKUS [Concomitant]
  3. LISINOPRIL [Concomitant]
  4. BISOPROLOL [Concomitant]
  5. VITAMIN D [Concomitant]

REACTIONS (3)
  - Arthralgia [None]
  - Myalgia [None]
  - Sinus headache [None]
